FAERS Safety Report 10842115 (Version 1)
Quarter: 2015Q1

REPORT INFORMATION
  Report Type: Report from Study
  Country: US (occurrence: US)
  Receive Date: 20150220
  Receipt Date: 20150220
  Transmission Date: 20150721
  Serious: No
  Sender: FDA-Public Use
  Company Number: US-ABBVIE-14P-163-1268976-00

PATIENT
  Age: 54 Year
  Sex: Female

DRUGS (15)
  1. BENADRYL [Concomitant]
     Active Substance: DIPHENHYDRAMINE HYDROCHLORIDE
     Indication: SEASONAL ALLERGY
     Dosage: 1
  2. TRIAMCINOLONE ACETONIDE. [Concomitant]
     Active Substance: TRIAMCINOLONE ACETONIDE
     Indication: SKIN LESION
  3. PREDNISONE. [Concomitant]
     Active Substance: PREDNISONE
     Indication: PRURITUS
     Dosage: 1 WEEK
     Dates: start: 201407, end: 201407
  4. PREDNISONE. [Concomitant]
     Active Substance: PREDNISONE
     Dates: start: 201407
  5. HUMIRA [Suspect]
     Active Substance: ADALIMUMAB
     Indication: CROHN^S DISEASE
     Route: 065
     Dates: start: 20140702, end: 20140702
  6. PAIN MEDICINE [Concomitant]
     Indication: SKIN LESION
  7. HYDROCODONE [Concomitant]
     Active Substance: HYDROCODONE
     Indication: PAIN
     Dosage: 5/325MG, STATES ONLY TAKES .5 TBS AT A TIME BC MAKES SICK TO STOMACH
  8. TRAMADOL [Concomitant]
     Active Substance: TRAMADOL
     Indication: PRODUCT USED FOR UNKNOWN INDICATION
     Dosage: B/C HYDROCODONE MAKES PATIENT ILL
  9. PREDNISONE. [Concomitant]
     Active Substance: PREDNISONE
     Dates: start: 20140819
  10. HYDROCODONE [Concomitant]
     Active Substance: HYDROCODONE
     Indication: HAEMORRHOIDS
  11. XANAX [Concomitant]
     Active Substance: ALPRAZOLAM
     Indication: INSOMNIA
     Dosage: AT NIGHT
  12. BENADRYL [Concomitant]
     Active Substance: DIPHENHYDRAMINE HYDROCHLORIDE
     Indication: PRURITUS
     Dosage: 2 EVERY 4-6 HOURS
  13. MUPIROCIN. [Concomitant]
     Active Substance: MUPIROCIN
     Indication: SKIN LESION
     Dates: start: 20140805
  14. HUMIRA [Suspect]
     Active Substance: ADALIMUMAB
     Route: 065
     Dates: start: 20140716, end: 20140716
  15. RANITIDINE [Concomitant]
     Active Substance: RANITIDINE\RANITIDINE HYDROCHLORIDE
     Indication: HYPERCHLORHYDRIA

REACTIONS (8)
  - Oropharyngeal pain [Not Recovered/Not Resolved]
  - Pruritus generalised [Not Recovered/Not Resolved]
  - Arthralgia [Unknown]
  - Rash [Not Recovered/Not Resolved]
  - Decreased appetite [Not Recovered/Not Resolved]
  - Local swelling [Unknown]
  - Weight decreased [Not Recovered/Not Resolved]
  - Joint swelling [Not Recovered/Not Resolved]

NARRATIVE: CASE EVENT DATE: 201407
